FAERS Safety Report 6937719-4 (Version None)
Quarter: 2010Q3

REPORT INFORMATION
  Report Type: 
  Country: None (occurrence: None)
  Receive Date: 20100820
  Receipt Date: 20100820
  Transmission Date: 20110219
  Serious: Yes (Hospitalization)
  Sender: FDA-Public Use
  Company Number: None

PATIENT
  Age: 62 Year
  Sex: Male

DRUGS (1)
  1. ROSUVASTATIN [Suspect]
     Dosage: 10 MG EVERY DAY PO
     Route: 048
     Dates: start: 20100713, end: 20100718

REACTIONS (3)
  - RHABDOMYOLYSIS [None]
  - SYNCOPE [None]
  - URINE OUTPUT DECREASED [None]
